FAERS Safety Report 10408376 (Version 1)
Quarter: 2014Q3

REPORT INFORMATION
  Report Type: Spontaneous
  Country: US (occurrence: US)
  Receive Date: 20140826
  Receipt Date: 20140826
  Transmission Date: 20150326
  Serious: Yes (Hospitalization)
  Sender: FDA-Public Use
  Company Number: US-BRISTOL-MYERS SQUIBB COMPANY-21309745

PATIENT
  Age: 84 Year
  Sex: Male
  Weight: 79.36 kg

DRUGS (7)
  1. AMIODARONE HCL [Concomitant]
     Active Substance: AMIODARONE HYDROCHLORIDE
  2. WARFARIN SODIUM. [Suspect]
     Active Substance: WARFARIN SODIUM
  3. COUMADIN [Suspect]
     Active Substance: WARFARIN SODIUM
  4. DILTIAZEM HCL [Concomitant]
     Active Substance: DILTIAZEM HYDROCHLORIDE
     Dosage: 1 DF=180 NO UNITS
  5. MELATONIN [Concomitant]
     Active Substance: MELATONIN
     Dosage: QHS
  6. CARVEDILOL. [Concomitant]
     Active Substance: CARVEDILOL
     Dosage: 1 DF=6.25 NO UNITS
  7. FLUTICASONE PROPIONATE. [Concomitant]
     Active Substance: FLUTICASONE PROPIONATE
     Dosage: 50MCG QHS

REACTIONS (1)
  - Bladder cancer [Unknown]
